FAERS Safety Report 8638581 (Version 3)
Quarter: 2013Q2

REPORT INFORMATION
  Report Type: Spontaneous
  Country: CN (occurrence: CN)
  Receive Date: 20120627
  Receipt Date: 20130606
  Transmission Date: 20140414
  Serious: Yes (Hospitalization, Other)
  Sender: FDA-Public Use
  Company Number: CN-ASTRAZENECA-2012SE40685

PATIENT
  Age: 54 Year
  Sex: Female

DRUGS (2)
  1. SYMBICORT TURBUHALER [Suspect]
     Dosage: 1 TO 2 INHALATIONS PER DAY
     Route: 055
     Dates: start: 2011
  2. SALBUTAMOL [Suspect]

REACTIONS (2)
  - Haemoptysis [Recovered/Resolved]
  - Wrong technique in drug usage process [Unknown]
